FAERS Safety Report 9606848 (Version 2)
Quarter: 2014Q2

REPORT INFORMATION
  Report Type: Spontaneous
  Country: US (occurrence: US)
  Receive Date: 20131008
  Receipt Date: 20140519
  Transmission Date: 20141212
  Serious: No
  Sender: FDA-Public Use
  Company Number: US-AMGEN-USASP2013060291

PATIENT
  Age: 77 Year
  Sex: Female

DRUGS (2)
  1. PROLIA [Suspect]
     Indication: OSTEOPENIA
     Dosage: UNK
     Route: 065
     Dates: start: 20130702
  2. CALCIUM + VITAMIN D [Concomitant]
     Dosage: 600 MG, BID
     Route: 065

REACTIONS (8)
  - Arthralgia [Unknown]
  - Hypoaesthesia [Recovered/Resolved]
  - Paraesthesia [Recovered/Resolved]
  - Muscle spasms [Unknown]
  - Vein disorder [Unknown]
  - Vein discolouration [Unknown]
  - Bursitis [Unknown]
  - Dental caries [Unknown]
